FAERS Safety Report 20202416 (Version 1)
Quarter: 2021Q4

REPORT INFORMATION
  Report Type: Spontaneous
  Country: JP (occurrence: JP)
  Receive Date: 20211217
  Receipt Date: 20211217
  Transmission Date: 20220303
  Serious: Yes (Death)
  Sender: FDA-Public Use
  Company Number: JP-BAXTER-2021BAX040954

PATIENT
  Age: 76 Year
  Sex: Male

DRUGS (4)
  1. CYCLOPHOSPHAMIDE [Suspect]
     Active Substance: CYCLOPHOSPHAMIDE
     Indication: Angioimmunoblastic T-cell lymphoma
     Dosage: IN LATE APR OF UNKNOWN YEAR
     Route: 065
  2. PREDNISOLONE [Concomitant]
     Active Substance: PREDNISOLONE
     Indication: Angioimmunoblastic T-cell lymphoma
     Dosage: IN LATE MAR OF UNKNOWN YEAR
     Route: 065
  3. DOXORUBICIN HYDROCHLORIDE [Concomitant]
     Active Substance: DOXORUBICIN HYDROCHLORIDE
     Indication: Angioimmunoblastic T-cell lymphoma
     Dosage: IN LATE APR OF UNKNOWN YEAR
     Route: 065
  4. VINCRISTINE SULFATE [Concomitant]
     Active Substance: VINCRISTINE SULFATE
     Indication: Angioimmunoblastic T-cell lymphoma
     Dosage: IN LATE APR OF UNKNOWN YEAR
     Route: 065

REACTIONS (1)
  - Myxofibrosarcoma [Fatal]
